FAERS Safety Report 25576242 (Version 1)
Quarter: 2025Q3

REPORT INFORMATION
  Report Type: Spontaneous
  Country: US (occurrence: US)
  Receive Date: 20250718
  Receipt Date: 20250718
  Transmission Date: 20251020
  Serious: No
  Sender: ROCHE
  Company Number: US-ROCHE-10000337459

PATIENT
  Age: 40 Year
  Sex: Female

DRUGS (2)
  1. DORNASE ALFA [Suspect]
     Active Substance: DORNASE ALFA
     Indication: Tuberculous pleurisy
     Route: 065
  2. ALTEPLASE [Concomitant]
     Active Substance: ALTEPLASE

REACTIONS (2)
  - Off label use [Unknown]
  - No adverse event [Unknown]
